FAERS Safety Report 6626542-6 (Version None)
Quarter: 2010Q1

REPORT INFORMATION
  Report Type: 
  Country: None (occurrence: None)
  Receive Date: 20100310
  Receipt Date: 20100303
  Transmission Date: 20100710
  Serious: Yes (Hospitalization, Other)
  Sender: FDA-Public Use
  Company Number: CA-ABBOTT-10P-028-0630464-00

PATIENT
  Sex: Male
  Weight: 74.456 kg

DRUGS (10)
  1. HUMIRA [Suspect]
     Indication: CROHN'S DISEASE
     Route: 058
     Dates: start: 20071101
  2. ACTONEL [Concomitant]
     Indication: OSTEOPENIA
     Route: 048
  3. VITAMIN B-12 [Concomitant]
     Indication: DRUG USE FOR UNKNOWN INDICATION
     Route: 058
  4. POTASSIUM [Concomitant]
     Indication: NEPHROLITHIASIS
     Route: 048
  5. IRON [Concomitant]
     Indication: DRUG USE FOR UNKNOWN INDICATION
     Route: 048
  6. VITAMIN D [Concomitant]
     Indication: VITAMIN SUPPLEMENTATION
     Route: 048
  7. VITAMIN C [Concomitant]
     Indication: DRUG USE FOR UNKNOWN INDICATION
     Route: 048
  8. MULTI-VITAMINS [Concomitant]
     Indication: DRUG USE FOR UNKNOWN INDICATION
     Route: 048
  9. H1N1 VACCINE [Concomitant]
     Indication: DRUG USE FOR UNKNOWN INDICATION
     Dates: start: 20091201
  10. FLU SHOT [Concomitant]
     Indication: DRUG USE FOR UNKNOWN INDICATION
     Dates: start: 20091101

REACTIONS (9)
  - ARTHRALGIA [None]
  - ASTHENIA [None]
  - GASTRIC ULCER HAEMORRHAGE [None]
  - HAEMOGLOBIN ABNORMAL [None]
  - HEADACHE [None]
  - HEPATIC CIRRHOSIS [None]
  - HEPATIC ENZYME ABNORMAL [None]
  - NASOPHARYNGITIS [None]
  - PAIN [None]
